FAERS Safety Report 7398783-4 (Version None)
Quarter: 2011Q2

REPORT INFORMATION
  Report Type: 
  Country: None (occurrence: None)
  Receive Date: 20110401
  Receipt Date: 20110401
  Transmission Date: 20111010
  Serious: Yes (Hospitalization)
  Sender: FDA-Public Use
  Company Number: None

PATIENT
  Sex: Male
  Weight: 94 kg

DRUGS (7)
  1. RITUXIMAB (MOAB C2B8 ANTI CD20, CHIMERIC) [Suspect]
     Dosage: 795 MG
  2. NORVASC [Concomitant]
  3. VINCRISTINE SULFATE [Suspect]
     Dosage: 2 MG
  4. DOXORUBICIN HCL [Suspect]
     Dosage: 106 MG
  5. PREDNISONE [Suspect]
     Dosage: 425 MG
  6. LISINOPRIL [Concomitant]
  7. CYCLOPHOSPHAMIDE [Suspect]
     Dosage: 1590 MG

REACTIONS (5)
  - BRADYCARDIA [None]
  - HYPERHIDROSIS [None]
  - HYPOTENSION [None]
  - DIZZINESS [None]
  - SYNCOPE [None]
